FAERS Safety Report 6847784-0 (Version None)
Quarter: 2010Q3

REPORT INFORMATION
  Report Type: 
  Country: None (occurrence: None)
  Receive Date: 20100716
  Receipt Date: 20100707
  Transmission Date: 20110219
  Serious: Yes (Hospitalization)
  Sender: FDA-Public Use
  Company Number: DE-WYE-H16005810

PATIENT

DRUGS (5)
  1. PANTOZOL [Suspect]
     Dosage: OVERDOSE AMOUNT 1200 MG (30 TABLETS/40 MG EACH)
  2. ALCOHOL [Suspect]
     Dosage: ^BIG AMOUNT^
  3. DICLOFENAC [Suspect]
     Dosage: UNKNOWN
  4. LOPERAMIDE HYDROCHLORIDE [Suspect]
     Dosage: UNKNOWN
  5. IBUPROFEN [Suspect]
     Dosage: UNKNOWN

REACTIONS (6)
  - ALANINE AMINOTRANSFERASE INCREASED [None]
  - ASPARTATE AMINOTRANSFERASE INCREASED [None]
  - DRUG TOXICITY [None]
  - GAMMA-GLUTAMYLTRANSFERASE INCREASED [None]
  - INTENTIONAL OVERDOSE [None]
  - SUICIDE ATTEMPT [None]
